FAERS Safety Report 4483757-3 (Version None)
Quarter: 2004Q4

REPORT INFORMATION
  Report Type: 
  Country: None (occurrence: None)
  Receive Date: 20041021
  Receipt Date: 20041004
  Transmission Date: 20050328
  Serious: Yes (Disabling)
  Sender: FDA-Public Use
  Company Number: DSA_24216_2004

PATIENT
  Sex: Male

DRUGS (11)
  1. ATIVAN [Suspect]
     Indication: ANXIETY
     Dosage: 1 MG PO
     Route: 048
     Dates: start: 19801003, end: 19810129
  2. ATIVAN [Suspect]
     Indication: STRESS SYMPTOMS
     Dosage: 1 MG PO
     Route: 048
     Dates: start: 19801003, end: 19810129
  3. ATIVAN [Suspect]
     Indication: ANXIETY
     Dosage: 2 MG PO
     Route: 048
     Dates: start: 19810629, end: 19810408
  4. ATIVAN [Suspect]
     Indication: STRESS SYMPTOMS
     Dosage: 2 MG PO
     Route: 048
     Dates: start: 19810629, end: 19810408
  5. ATIVAN [Suspect]
     Indication: ANXIETY
     Dosage: 1 MG PO
     Route: 048
     Dates: start: 19810408, end: 19850503
  6. ATIVAN [Suspect]
     Indication: STRESS SYMPTOMS
     Dosage: 1 MG PO
     Route: 048
     Dates: start: 19810408, end: 19850503
  7. LORAZEPAM [Suspect]
     Indication: ANXIETY
     Dosage: 1 MUG PO
     Route: 048
     Dates: start: 19850503
  8. LORAZEPAM [Suspect]
     Indication: STRESS SYMPTOMS
     Dosage: 1 MUG PO
     Route: 048
     Dates: start: 19850503
  9. SCHERIPROCT [Concomitant]
  10. FRISIUM [Concomitant]
  11. SERC ^DUPHAR^ [Concomitant]

REACTIONS (21)
  - AMNESIA [None]
  - ANXIETY [None]
  - ASTHENIA [None]
  - DEPRESSED LEVEL OF CONSCIOUSNESS [None]
  - DEPRESSION [None]
  - DISTURBANCE IN ATTENTION [None]
  - DRUG DEPENDENCE [None]
  - DRUG WITHDRAWAL SYNDROME [None]
  - GASTRIC DISORDER [None]
  - GENERAL PHYSICAL HEALTH DETERIORATION [None]
  - HEART RATE INCREASED [None]
  - IMPAIRED DRIVING ABILITY [None]
  - IMPAIRED WORK ABILITY [None]
  - IRRITABILITY [None]
  - PALPITATIONS [None]
  - PANIC ATTACK [None]
  - PERSONALITY CHANGE [None]
  - SCOTOMA [None]
  - SLEEP DISORDER [None]
  - STRESS SYMPTOMS [None]
  - TINNITUS [None]
